FAERS Safety Report 6255909-3 (Version None)
Quarter: 2009Q3

REPORT INFORMATION
  Report Type: 
  Country: None (occurrence: None)
  Receive Date: 20090703
  Receipt Date: 20090626
  Transmission Date: 20100115
  Serious: Yes (Hospitalization)
  Sender: FDA-Public Use
  Company Number: US-MYLANLABS-2009S1010325

PATIENT
  Age: 73 Year
  Sex: Female
  Weight: 105.69 kg

DRUGS (26)
  1. FENTANYL TRANSDERMAL SYSTEM [Suspect]
     Indication: BACK PAIN
     Dosage: CHANGED PATCHES Q3D PRN
     Route: 062
     Dates: start: 20090501, end: 20090517
  2. FENTANYL TRANSDERMAL SYSTEM [Suspect]
     Indication: ARTHRALGIA
     Dosage: CHANGED PATCHES Q3D PRN
     Route: 062
     Dates: start: 20090501, end: 20090517
  3. FENTANYL TRANSDERMAL SYSTEM [Suspect]
     Indication: PAIN
     Dosage: CHANGED PATCHES Q3D PRN
     Route: 062
     Dates: start: 20090501, end: 20090517
  4. FENTANYL TRANSDERMAL SYSTEM [Suspect]
     Dosage: CHANGED PATCHES Q3D PRN
     Route: 062
     Dates: start: 20090501, end: 20090501
  5. FENTANYL TRANSDERMAL SYSTEM [Suspect]
     Dosage: CHANGED PATCHES Q3D PRN
     Route: 062
     Dates: start: 20090501, end: 20090501
  6. FENTANYL TRANSDERMAL SYSTEM [Suspect]
     Dosage: CHANGED PATCHES Q3D PRN
     Route: 062
     Dates: start: 20090501, end: 20090501
  7. FOLIC ACID [Concomitant]
     Route: 048
     Dates: start: 20080228
  8. AVAPRO [Concomitant]
     Indication: BLOOD PRESSURE INCREASED
     Route: 048
     Dates: start: 20000915
  9. LASIX [Concomitant]
     Indication: FLUID RETENTION
     Route: 048
     Dates: start: 20080111
  10. LOVASTATIN [Concomitant]
     Indication: BLOOD CHOLESTEROL INCREASED
     Route: 048
     Dates: start: 20060710
  11. VITAMIN D [Concomitant]
     Route: 042
     Dates: start: 20080218
  12. VITAMIN K [Concomitant]
     Route: 030
  13. DIFLUNISAL [Concomitant]
     Route: 048
  14. DIAZEPAM [Concomitant]
     Route: 048
     Dates: start: 20030304
  15. GLIPIZIDE [Concomitant]
     Route: 048
     Dates: start: 20000628
  16. MECLIZINE [Concomitant]
     Indication: DIZZINESS
     Dates: start: 20061005
  17. LEVOTHYROXINE SODIUM [Concomitant]
     Dates: start: 20000627
  18. ARICEPT [Concomitant]
     Indication: MEMORY IMPAIRMENT
     Route: 048
     Dates: start: 20060828
  19. GABAPENTIN [Concomitant]
     Route: 048
     Dates: start: 20070502
  20. SEROQUEL [Concomitant]
     Route: 048
     Dates: start: 20060712
  21. ZEMPLAR [Concomitant]
     Indication: RENAL IMPAIRMENT
     Route: 048
     Dates: start: 20080610
  22. OMEPRAZOLE [Concomitant]
     Indication: ABDOMINAL DISCOMFORT
     Route: 048
     Dates: start: 20060828
  23. OXYCODONE [Concomitant]
     Indication: PAIN
     Route: 048
     Dates: start: 20060727
  24. LIDODERM [Concomitant]
     Route: 062
     Dates: start: 20070625
  25. HYDROCHLOROTHIAZIDE [Concomitant]
  26. SIMVASTATIN [Concomitant]

REACTIONS (4)
  - COMA [None]
  - INAPPROPRIATE SCHEDULE OF DRUG ADMINISTRATION [None]
  - INCORRECT DOSE ADMINISTERED [None]
  - SEDATION [None]
